FAERS Safety Report 17230327 (Version 4)
Quarter: 2020Q1

REPORT INFORMATION
  Report Type: Report from Study
  Country: RO (occurrence: RO)
  Receive Date: 20200103
  Receipt Date: 20200122
  Transmission Date: 20200409
  Serious: Yes (Hospitalization)
  Sender: FDA-Public Use
  Company Number: RO-JNJFOC-20191244915

PATIENT
  Age: 67 Year
  Sex: Male
  Weight: 65 kg

DRUGS (23)
  1. LIORESAL [Concomitant]
     Active Substance: BACLOFEN
     Route: 065
     Dates: start: 20190620, end: 20191107
  2. TAVANIC [Concomitant]
     Active Substance: LEVOFLOXACIN
     Route: 065
     Dates: start: 20191108, end: 20191114
  3. CONTROLOC [Concomitant]
     Active Substance: PANTOPRAZOLE SODIUM
     Route: 065
     Dates: start: 20180217
  4. NEXIUM [Concomitant]
     Active Substance: ESOMEPRAZOLE MAGNESIUM
     Route: 065
     Dates: start: 20191128, end: 20191222
  5. SILIMARIN [Concomitant]
     Dates: start: 1995
  6. PRESTARIUM                         /00790701/ [Concomitant]
     Active Substance: PERINDOPRIL
     Route: 065
     Dates: start: 20191219
  7. METOPROLOL. [Concomitant]
     Active Substance: METOPROLOL
     Route: 065
     Dates: start: 20191219
  8. DARATUMUMAB [Suspect]
     Active Substance: DARATUMUMAB
     Indication: PLASMA CELL MYELOMA
     Dosage: 1040 MILLIGRAM, PER CHEMO REGIMEN. ?LAST DOSE PRIOR TO THE EVENT WAS 19-DEC-2019
     Route: 042
     Dates: start: 20180215
  9. CARFILZOMIB [Suspect]
     Active Substance: CARFILZOMIB
     Indication: PLASMA CELL MYELOMA
     Dosage: 76 MILLIGRAM, PER CHEMO REGIMEN. ?LAST DOSE PRIOR TO SAE ON 20-DEC-2019
     Route: 042
     Dates: start: 20180215
  10. MOTILIUM [Concomitant]
     Active Substance: DOMPERIDONE
     Route: 065
     Dates: start: 20191128, end: 20191203
  11. MONTELUKAST [Concomitant]
     Active Substance: MONTELUKAST SODIUM
     Route: 065
     Dates: start: 20180215
  12. SALINE                             /00075401/ [Concomitant]
     Active Substance: SODIUM CHLORIDE
     Dosage: 500 MILLILITER
     Route: 042
     Dates: start: 20180223, end: 20191222
  13. ZOLEDRONIC ACID [Concomitant]
     Active Substance: ZOLEDRONIC ACID
     Dosage: 4 MILLIGRAM AND  4 MILLIEQUIVALENT
     Route: 042
     Dates: start: 20180316
  14. PARACETAMOL [Concomitant]
     Active Substance: ACETAMINOPHEN
     Dosage: 1  MILLIGRAM AND 1 GRAM
     Route: 042
     Dates: start: 20180215
  15. DEXAMETHASONE. [Concomitant]
     Active Substance: DEXAMETHASONE
     Indication: PLASMA CELL MYELOMA
     Dosage: 8-12 MG
     Route: 048
     Dates: start: 20180215
  16. ALANERV [Concomitant]
     Active Substance: DIETARY SUPPLEMENT
     Route: 065
     Dates: start: 20190723
  17. HALOPERIDOL. [Concomitant]
     Active Substance: HALOPERIDOL
     Dosage: 5-10 GTT DROPS
     Route: 065
     Dates: start: 20191010, end: 20191225
  18. OCTANATE [Concomitant]
     Active Substance: ANTIHEMOPHILIC FACTOR HUMAN
     Route: 065
     Dates: start: 20190724
  19. AERIUS                             /01009701/ [Concomitant]
     Active Substance: EBASTINE
     Dosage: 5 MILLIGRAM
     Route: 048
     Dates: start: 20180215
  20. METOCLOPRAMIDE. [Concomitant]
     Active Substance: METOCLOPRAMIDE
     Route: 065
     Dates: start: 20190620, end: 20191225
  21. ACICLOVIR [Concomitant]
     Active Substance: ACYCLOVIR
     Route: 065
     Dates: start: 20180207
  22. DEBRIDAT                           /00465201/ [Concomitant]
     Active Substance: TRIMEBUTINE MALEATE
     Dosage: 200 MILLIGRAM AND 2 UNK
     Route: 065
     Dates: start: 20191010, end: 20200103
  23. AMLODIPINE [Concomitant]
     Active Substance: AMLODIPINE BESYLATE
     Dosage: 5-10 MILLIGRAM
     Route: 065
     Dates: start: 20191128

REACTIONS (2)
  - Hiccups [Recovered/Resolved]
  - Interstitial lung disease [Not Recovered/Not Resolved]

NARRATIVE: CASE EVENT DATE: 20191220
